FAERS Safety Report 7973505-4 (Version None)
Quarter: 2011Q4

REPORT INFORMATION
  Report Type: 
  Country: None (occurrence: None)
  Receive Date: 20111213
  Receipt Date: 20111202
  Transmission Date: 20120403
  Serious: Yes (Hospitalization)
  Sender: FDA-Public Use
  Company Number: NL-AMGEN-NLDSP2011048340

PATIENT
  Sex: Female
  Weight: 19 kg

DRUGS (9)
  1. ARANESP [Suspect]
     Indication: RENAL FAILURE CHRONIC
     Dosage: 10 MUG, Q2WK
     Route: 058
  2. ARANESP [Suspect]
     Dosage: 5 MUG, Q2WK
     Route: 058
     Dates: end: 20110829
  3. LEVOTHYROXINE SODIUM [Concomitant]
     Dosage: 50 MUG, UNK
  4. ETALPHA [Concomitant]
     Dosage: UNK
  5. VALPROIC ACID [Concomitant]
     Dosage: 40 MG/ML, UNK
  6. NACL [Concomitant]
     Dosage: UNK
  7. OXYBUTYNINE [Concomitant]
     Dosage: 1 MG/ML, UNK
  8. ENALAPRIL MALEATE [Concomitant]
     Dosage: 1 MG/ML, UNK
  9. POTASSIUM CITRATE [Concomitant]
     Dosage: 144 MG/ML, UNK

REACTIONS (3)
  - OBSTRUCTIVE AIRWAYS DISORDER [None]
  - DYSPNOEA [None]
  - RESTLESSNESS [None]
